FAERS Safety Report 13080285 (Version 1)
Quarter: 2017Q1

REPORT INFORMATION
  Report Type: Spontaneous
  Country: US (occurrence: US)
  Receive Date: 20170103
  Receipt Date: 20170103
  Transmission Date: 20170428
  Serious: No
  Sender: FDA-Public Use
  Company Number: US-GLAXOSMITHKLINE-US2016GSK192967

PATIENT
  Age: 54 Year
  Sex: Female

DRUGS (1)
  1. NUCALA [Suspect]
     Active Substance: MEPOLIZUMAB
     Indication: ASTHMA
     Dosage: 100 MG, Z
     Route: 058
     Dates: start: 201610

REACTIONS (8)
  - Cough [Unknown]
  - Wheezing [Unknown]
  - Erythema [Unknown]
  - Sinusitis [Unknown]
  - Chest discomfort [Unknown]
  - Malaise [Recovering/Resolving]
  - Pallor [Unknown]
  - Asthma [Unknown]

NARRATIVE: CASE EVENT DATE: 201610
